FAERS Safety Report 9957758 (Version 1)
Quarter: 2014Q1

REPORT INFORMATION
  Report Type: Report from Study
  Country: US (occurrence: US)
  Receive Date: 20140304
  Receipt Date: 20140304
  Transmission Date: 20141002
  Serious: No
  Sender: FDA-Public Use
  Company Number: US-ABBVIE-13P-163-1094188-00

PATIENT
  Sex: Female

DRUGS (8)
  1. HUMIRA [Suspect]
     Indication: CROHN^S DISEASE
     Route: 058
     Dates: start: 201302
  2. PREDNISONE [Suspect]
     Indication: BRONCHITIS
     Dosage: TAPERED DOSE
  3. ZOFRAN [Concomitant]
     Indication: VOMITING
  4. MARINOL [Concomitant]
     Indication: APPETITE DISORDER
  5. MARINOL [Concomitant]
     Indication: CROHN^S DISEASE
  6. PROTONIX [Concomitant]
     Indication: PRODUCT USED FOR UNKNOWN INDICATION
     Dosage: 40 MG DAILY
  7. BENTYL [Concomitant]
     Indication: PRODUCT USED FOR UNKNOWN INDICATION
  8. VITAMIN D [Concomitant]
     Indication: PRODUCT USED FOR UNKNOWN INDICATION

REACTIONS (8)
  - Productive cough [Recovering/Resolving]
  - Bronchitis [Recovering/Resolving]
  - Vomiting [Recovering/Resolving]
  - Headache [Recovering/Resolving]
  - Respiratory tract congestion [Recovering/Resolving]
  - Wheezing [Recovering/Resolving]
  - Night sweats [Recovering/Resolving]
  - Cushingoid [Recovering/Resolving]
